FAERS Safety Report 7676908-0 (Version None)
Quarter: 2011Q3

REPORT INFORMATION
  Report Type: 
  Country: None (occurrence: None)
  Receive Date: 20110811
  Receipt Date: 20110805
  Transmission Date: 20111222
  Serious: Yes (Life-Threatening, Hospitalization, Other)
  Sender: FDA-Public Use
  Company Number: PHHY2011BR71068

PATIENT
  Sex: Male

DRUGS (5)
  1. ETOPOSIDE [Concomitant]
     Indication: LEUKAEMIA
     Route: 042
  2. DEXAMETHASONE [Concomitant]
     Indication: INFLAMMATION
     Route: 042
  3. ASPARAGINASE [Concomitant]
     Indication: LEUKAEMIA
     Route: 042
  4. VINCRISTINE [Concomitant]
     Dosage: UNK
     Route: 042
  5. TASIGNA [Suspect]
     Indication: LEUKAEMIA
     Dosage: 600 MG, DAY
     Route: 048
     Dates: start: 20110720

REACTIONS (12)
  - RESPIRATORY DISTRESS [None]
  - MYALGIA [None]
  - BRAIN OEDEMA [None]
  - INTRACRANIAL PRESSURE INCREASED [None]
  - ASTHENIA [None]
  - CONVULSION [None]
  - SPEECH DISORDER [None]
  - MUCOSAL INFLAMMATION [None]
  - DECREASED APPETITE [None]
  - CEREBRAL ISCHAEMIA [None]
  - COMA [None]
  - ALTERED STATE OF CONSCIOUSNESS [None]
